FAERS Safety Report 6409506-7 (Version None)
Quarter: 2009Q4

REPORT INFORMATION
  Report Type: 
  Country: None (occurrence: None)
  Receive Date: 20091013
  Receipt Date: 20091006
  Transmission Date: 20100525
  Serious: Yes (Other)
  Sender: FDA-Public Use
  Company Number: CHPA2009US19909

PATIENT
  Age: 67 Year
  Sex: Female
  Weight: 55.3 kg

DRUGS (3)
  1. LAMISIL AT [Suspect]
     Indication: INFECTION
     Dosage: TOPICAL
     Route: 061
     Dates: start: 20090901, end: 20090901
  2. LAMISIL AT [Suspect]
     Indication: INFECTION
     Dosage: TOPICAL
     Route: 061
     Dates: start: 20090921, end: 20090924
  3. LAMISIL [Suspect]
     Indication: FUNGAL INFECTION
     Dosage: 250MG, ORAL
     Route: 048
     Dates: start: 20090901, end: 20090924

REACTIONS (4)
  - AGEUSIA [None]
  - DRUG INEFFECTIVE [None]
  - OVERDOSE [None]
  - WEIGHT DECREASED [None]
